FAERS Safety Report 8993209 (Version 2)
Quarter: 2013Q1

REPORT INFORMATION
  Report Type: Spontaneous
  Country: US (occurrence: US)
  Receive Date: 20130102
  Receipt Date: 20130122
  Transmission Date: 20140127
  Serious: Yes (Other)
  Sender: FDA-Public Use
  Company Number: US-ROCHE-1175002

PATIENT
  Sex: 0

DRUGS (4)
  1. GANCICLOVIR [Suspect]
     Indication: ACQUIRED IMMUNODEFICIENCY SYNDROME
     Dosage: INDUCTION DOSE
     Route: 042
  2. GANCICLOVIR [Suspect]
     Indication: RETINITIS
     Dosage: MAITENANCE DOSE
     Route: 042
  3. GANCICLOVIR [Suspect]
     Indication: CYTOMEGALOVIRUS INFECTION
  4. FOSCARNET [Concomitant]

REACTIONS (1)
  - Drug resistance [Unknown]
